FAERS Safety Report 10182510 (Version 1)
Quarter: 2014Q2

REPORT INFORMATION
  Report Type: Spontaneous
  Country: US (occurrence: None)
  Receive Date: 20140516
  Receipt Date: 20140516
  Transmission Date: 20141212
  Serious: Yes (Hospitalization)
  Sender: FDA-Public Use
  Company Number: 2014P1003922

PATIENT
  Age: 74 Year
  Sex: Female

DRUGS (1)
  1. DURAMORPH [Suspect]
     Indication: PAIN

REACTIONS (2)
  - Pain [None]
  - Device issue [None]
